FAERS Safety Report 5501429-0 (Version None)
Quarter: 2007Q4

REPORT INFORMATION
  Report Type: 
  Country: None (occurrence: None)
  Receive Date: 20071018
  Receipt Date: 20070225
  Transmission Date: 20080405
  Serious: Yes (Other)
  Sender: FDA-Public Use
  Company Number: 2007015496

PATIENT
  Age: 25 Year
  Sex: Male
  Weight: 72.6 kg

DRUGS (5)
  1. NEURONTIN [Suspect]
     Indication: MOOD SWINGS
     Dosage: 900 MG (300 MG, 3 IN 1 D)
     Dates: start: 20070118
  2. XANAX [Concomitant]
  3. KLONOPIN [Concomitant]
  4. BUPRENORPHINE HCL [Concomitant]
  5. NALOXONE [Concomitant]

REACTIONS (6)
  - DIZZINESS [None]
  - DYSPNOEA [None]
  - HYPOAESTHESIA [None]
  - LOSS OF CONSCIOUSNESS [None]
  - OEDEMA PERIPHERAL [None]
  - PAIN [None]
